FAERS Safety Report 8919871 (Version 3)
Quarter: 2013Q1

REPORT INFORMATION
  Report Type: Spontaneous
  Country: US (occurrence: US)
  Receive Date: 20121121
  Receipt Date: 20130227
  Transmission Date: 20140127
  Serious: Yes (Hospitalization, Other)
  Sender: FDA-Public Use
  Company Number: US-JNJFOC-20121106902

PATIENT
  Age: 65 None
  Sex: Male
  Weight: 127.01 kg

DRUGS (45)
  1. SANDOZ FENTANYL TRANSDERMAL SYSTEM [Suspect]
     Indication: INTERVERTEBRAL DISC DEGENERATION
     Route: 062
  2. SANDOZ FENTANYL TRANSDERMAL SYSTEM [Suspect]
     Indication: INTERVERTEBRAL DISC DEGENERATION
     Route: 062
     Dates: start: 20121108, end: 20121219
  3. SANDOZ FENTANYL TRANSDERMAL SYSTEM [Suspect]
     Indication: BACK PAIN
     Route: 062
  4. SANDOZ FENTANYL TRANSDERMAL SYSTEM [Suspect]
     Indication: BACK PAIN
     Route: 062
     Dates: start: 20121108, end: 20121219
  5. METOPROLOL SUCCINATE [Concomitant]
     Indication: PRODUCT USED FOR UNKNOWN INDICATION
     Dosage: AT BEDTIME
     Route: 048
  6. NITROSTAT [Concomitant]
     Indication: CARDIOMYOPATHY
     Route: 060
  7. NITROSTAT [Concomitant]
     Indication: GENERAL PHYSICAL CONDITION
     Route: 060
  8. NITROSTAT [Concomitant]
     Indication: CHEST PAIN
     Route: 060
  9. NORVASC [Concomitant]
     Indication: HYPERTENSION
     Route: 048
     Dates: start: 20120910
  10. PLAVIX [Concomitant]
     Indication: CARDIOMYOPATHY
     Route: 048
     Dates: start: 20120606
  11. PLAVIX [Concomitant]
     Indication: ANTICOAGULANT THERAPY
     Route: 048
     Dates: start: 20120606
  12. TOPROL [Concomitant]
     Indication: HYPERTENSION
     Dosage: 100 MG
     Route: 048
  13. ZOCOR [Concomitant]
     Indication: HYPERTENSION
     Route: 048
  14. ZOCOR [Concomitant]
     Indication: HYPERTENSION
     Route: 048
  15. VENLAFAXINE HYDROCHLORIDE [Concomitant]
     Indication: HYPERTENSION
     Route: 048
     Dates: start: 20120106
  16. VENLAFAXINE HYDROCHLORIDE [Concomitant]
     Indication: DEPRESSION
     Route: 048
     Dates: start: 20120106
  17. LASIX [Concomitant]
     Indication: CARDIOMYOPATHY
     Route: 048
  18. LASIX [Concomitant]
     Indication: CARDIOMYOPATHY
     Dosage: 1 AND HALF TABLET TWICE DAILY
     Route: 048
     Dates: start: 20121108
  19. LASIX [Concomitant]
     Indication: CARDIOMYOPATHY
     Route: 048
  20. LASIX [Concomitant]
     Indication: CARDIAC FAILURE CONGESTIVE
     Route: 048
  21. LASIX [Concomitant]
     Indication: CARDIAC FAILURE CONGESTIVE
     Dosage: 1 AND HALF TABLET TWICE DAILY
     Route: 048
     Dates: start: 20121108
  22. LASIX [Concomitant]
     Indication: CARDIAC FAILURE CONGESTIVE
     Route: 048
  23. ISOSORBIDE [Concomitant]
     Indication: HYPERTENSION
     Dosage: 1 1/2 -60 MG TABLET
     Route: 048
  24. ISOSORBIDE [Concomitant]
     Indication: HYPERTENSION
     Route: 048
  25. HYDROCORTISONE [Concomitant]
     Indication: ADDISON^S DISEASE
     Route: 048
     Dates: start: 20120606
  26. PRAVACHOL [Concomitant]
     Indication: HYPERTENSION
     Route: 048
     Dates: start: 20121219
  27. PRAVACHOL [Concomitant]
     Indication: HYPERTENSION
     Route: 048
     Dates: start: 20121127
  28. PRAVACHOL [Concomitant]
     Indication: HYPERTENSION
     Route: 048
     Dates: start: 20121112
  29. PRAVACHOL [Concomitant]
     Indication: HEPATIC STEATOSIS
     Route: 048
     Dates: start: 20121112
  30. PRAVACHOL [Concomitant]
     Indication: HEPATIC STEATOSIS
     Route: 048
     Dates: start: 20121127
  31. PRAVACHOL [Concomitant]
     Indication: HEPATIC STEATOSIS
     Route: 048
     Dates: start: 20121219
  32. PRAVACHOL [Concomitant]
     Indication: HYPERCHOLESTEROLAEMIA
     Route: 048
     Dates: start: 20121127
  33. PRAVACHOL [Concomitant]
     Indication: HYPERCHOLESTEROLAEMIA
     Route: 048
     Dates: start: 20121219
  34. PRAVACHOL [Concomitant]
     Indication: HYPERCHOLESTEROLAEMIA
     Route: 048
     Dates: start: 20121112
  35. LYRICA [Concomitant]
     Indication: CROHN^S DISEASE
     Route: 048
  36. KLOR CON [Concomitant]
     Indication: NUTRITIONAL SUPPLEMENTATION
     Route: 048
     Dates: start: 20121127
  37. FLONASE [Concomitant]
     Indication: RHINITIS ALLERGIC
     Dosage: ONE SPRAY EACH NOSTRIL
     Route: 045
     Dates: start: 20121108
  38. FLONASE [Concomitant]
     Indication: HYPERSENSITIVITY
     Dosage: ONE SPRAY EACH NOSTRIL
     Route: 045
     Dates: start: 20121108
  39. HYDROMORPHONE [Concomitant]
     Indication: INTERVERTEBRAL DISC DEGENERATION
     Dosage: 2 MG/4 TIMES A DAY/AS NEEDED
     Route: 048
     Dates: start: 20121023
  40. HYDROMORPHONE [Concomitant]
     Indication: BREAKTHROUGH PAIN
     Dosage: 2 MG/4 TIMES A DAY/AS NEEDED
     Route: 048
     Dates: start: 20121023
  41. SIMVASTATIN [Concomitant]
     Route: 065
  42. ASPIRIN [Concomitant]
     Indication: PRODUCT USED FOR UNKNOWN INDICATION
     Route: 048
  43. LISINOPRIL [Concomitant]
     Indication: ISCHAEMIC CARDIOMYOPATHY
     Route: 048
     Dates: start: 20121127
  44. MULTIPLE VITAMIN [Concomitant]
     Indication: GENERAL PHYSICAL CONDITION
     Route: 048
     Dates: start: 20120606
  45. ISOSORBIDE MONONITRATE [Concomitant]
     Indication: CARDIOMYOPATHY
     Dosage: ONE AND HALF TABLET ONCE DAILY
     Route: 048
     Dates: start: 20121108

REACTIONS (6)
  - Arterial occlusive disease [Not Recovered/Not Resolved]
  - Dyspnoea [Recovered/Resolved]
  - Chest pain [Recovered/Resolved]
  - Renal cyst [Unknown]
  - Pain [Not Recovered/Not Resolved]
  - Product quality issue [Not Recovered/Not Resolved]
